FAERS Safety Report 7150424-7 (Version None)
Quarter: 2010Q4

REPORT INFORMATION
  Report Type: 
  Country: None (occurrence: None)
  Receive Date: 20101210
  Receipt Date: 20101129
  Transmission Date: 20110411
  Serious: Yes (Hospitalization, Disabling)
  Sender: FDA-Public Use
  Company Number: PHHY2010JP30700

PATIENT
  Age: 56 Year
  Sex: Female

DRUGS (7)
  1. ZOMETA [Suspect]
     Indication: METASTASES TO BONE
     Dosage: 4 MG, UNK
     Route: 042
     Dates: start: 20070619, end: 20091209
  2. BISPHONAL [Suspect]
     Indication: METASTASES TO BONE
     Dosage: 10 MG
     Route: 042
     Dates: start: 20060516, end: 20070618
  3. FEMARA [Concomitant]
     Indication: BREAST CANCER
     Dosage: 2.5 MG, UNK
     Route: 048
     Dates: start: 20081111, end: 20090507
  4. ARIMIDEX [Concomitant]
     Indication: BREAST CANCER
     Dosage: 1 MG, UNK
     Route: 048
     Dates: start: 20060516, end: 20081110
  5. T.S [Concomitant]
     Indication: BREAST CANCER
     Dosage: 120 MG, UNK
     Route: 048
     Dates: start: 20090507
  6. TAXOTERE [Concomitant]
     Indication: BREAST CANCER
     Dosage: UNK
     Dates: start: 20090508, end: 20090824
  7. NAVELBINE [Concomitant]
     Indication: BREAST CANCER
     Dosage: 40 MG, UNK
     Dates: start: 20090904

REACTIONS (18)
  - ASPHYXIA [None]
  - BONE DISORDER [None]
  - GINGIVAL SWELLING [None]
  - HYPOAESTHESIA [None]
  - IMPAIRED HEALING [None]
  - JAW FRACTURE [None]
  - LOOSE TOOTH [None]
  - OPEN WOUND [None]
  - OSTEONECROSIS OF JAW [None]
  - OSTEORADIONECROSIS [None]
  - PAIN IN JAW [None]
  - PARALYSIS [None]
  - PERIODONTITIS [None]
  - SEQUESTRECTOMY [None]
  - SOMNOLENCE [None]
  - TOOTH LOSS [None]
  - TOOTHACHE [None]
  - WOUND DRAINAGE [None]
